FAERS Safety Report 4675809-X (Version None)
Quarter: 2005Q2

REPORT INFORMATION
  Report Type: 
  Country: None (occurrence: None)
  Receive Date: 20050527
  Receipt Date: 20050513
  Transmission Date: 20051028
  Serious: Yes (Other)
  Sender: FDA-Public Use
  Company Number: GBWYE665913MAY05

PATIENT
  Age: 61 Year
  Sex: Male

DRUGS (3)
  1. ENBREL [Suspect]
     Indication: RHEUMATOID ARTHRITIS
     Dosage: UNKNOWN
     Route: 058
     Dates: start: 20040801, end: 20050514
  2. DICLOFENAC [Concomitant]
     Route: 065
  3. METHOTREXATE [Concomitant]
     Route: 065

REACTIONS (2)
  - ANTINUCLEAR ANTIBODY POSITIVE [None]
  - SYSTEMIC LUPUS ERYTHEMATOSUS RASH [None]
